FAERS Safety Report 7877111 (Version 2)
Quarter: 2013Q1

REPORT INFORMATION
  Report Type: Spontaneous
  Country: US (occurrence: US)
  Receive Date: 20110330
  Receipt Date: 20130319
  Transmission Date: 20140127
  Serious: No
  Sender: FDA-Public Use
  Company Number: US-BIOGENIDEC-2011BI011572

PATIENT
  Sex: Female

DRUGS (1)
  1. TYSABRI [Suspect]
     Indication: MULTIPLE SCLEROSIS
     Route: 042
     Dates: start: 20090708, end: 20101001

REACTIONS (4)
  - Balance disorder [Not Recovered/Not Resolved]
  - Back pain [Unknown]
  - Gait disturbance [Not Recovered/Not Resolved]
  - Asthenia [Unknown]
